FAERS Safety Report 24824970 (Version 8)
Quarter: 2025Q3

REPORT INFORMATION
  Report Type: Report from Study
  Country: US (occurrence: US)
  Receive Date: 20250109
  Receipt Date: 20250702
  Transmission Date: 20251021
  Serious: Yes (Other)
  Sender: UCB
  Company Number: US-UCBSA-2025000892

PATIENT
  Age: 57 Year
  Sex: Male
  Weight: 72 kg

DRUGS (6)
  1. FINTEPLA [Suspect]
     Active Substance: FENFLURAMINE
     Indication: Severe myoclonic epilepsy of infancy
     Dates: start: 20210929
  2. FINTEPLA [Suspect]
     Active Substance: FENFLURAMINE
  3. FINTEPLA [Suspect]
     Active Substance: FENFLURAMINE
     Dosage: 5.9 MILLILITER, 2X/DAY (BID) (VIA GI TUBE)
  4. FINTEPLA [Suspect]
     Active Substance: FENFLURAMINE
     Dosage: 5.9 MILLILITER, 2X/DAY (BID)
  5. CLOBAZAM [Concomitant]
     Active Substance: CLOBAZAM
     Indication: Product used for unknown indication
     Dosage: 5 MILLIGRAM, 2X/DAY (BID)
     Dates: start: 20221122
  6. EPIDIOLEX [Concomitant]
     Active Substance: CANNABIDIOL
     Indication: Product used for unknown indication
     Dosage: 800 MILLIGRAM, 2X/DAY (BID)
     Dates: start: 20201021

REACTIONS (7)
  - Tricuspid valve incompetence [Recovering/Resolving]
  - Mitral valve thickening [Unknown]
  - Aortic valve thickening [Unknown]
  - Cardiac septal hypertrophy [Unknown]
  - Left ventricular hypertrophy [Unknown]
  - Weight increased [Not Recovered/Not Resolved]
  - Aortic valve sclerosis [Unknown]

NARRATIVE: CASE EVENT DATE: 20230608
